FAERS Safety Report 7308767-X (Version None)
Quarter: 2011Q1

REPORT INFORMATION
  Report Type: 
  Country: None (occurrence: None)
  Receive Date: 20110223
  Receipt Date: 20110214
  Transmission Date: 20110831
  Serious: Yes (Other)
  Sender: FDA-Public Use
  Company Number: PHHY2010MX45684

PATIENT
  Sex: Female

DRUGS (4)
  1. TRILEPTAL [Suspect]
     Dosage: 2.5 DF, QD
     Route: 048
     Dates: start: 20100801
  2. TRILEPTAL [Suspect]
     Indication: EPILEPSY
     Dosage: 1 DF, QD
     Route: 048
     Dates: start: 20000801
  3. TRILEPTAL [Suspect]
     Dosage: 3 DF, QD
     Route: 048
     Dates: start: 20100103
  4. LAMICTAL [Concomitant]
     Dosage: 2 DF, QD

REACTIONS (3)
  - BRAIN NEOPLASM [None]
  - GRAND MAL CONVULSION [None]
  - PETIT MAL EPILEPSY [None]
